FAERS Safety Report 18067992 (Version 1)
Quarter: 2020Q3

REPORT INFORMATION
  Report Type: Spontaneous
  Country: JP (occurrence: JP)
  Receive Date: 20200724
  Receipt Date: 20200724
  Transmission Date: 20201103
  Serious: Yes (Hospitalization)
  Sender: FDA-Public Use
  Company Number: JP-ELI_LILLY_AND_COMPANY-JP202007009401

PATIENT
  Age: 7 Year
  Sex: Female
  Weight: 16.2 kg

DRUGS (20)
  1. ALDACTONE A [Concomitant]
     Active Substance: SPIRONOLACTONE
     Dosage: 20 MG, DAILY
     Route: 065
     Dates: start: 20180630
  2. ENALART [Concomitant]
     Active Substance: ENALAPRIL MALEATE
     Indication: PRODUCT USED FOR UNKNOWN INDICATION
     Dosage: 3.2 MG, DAILY
     Route: 065
     Dates: start: 20180213, end: 20180526
  3. ADCIRCA [Suspect]
     Active Substance: TADALAFIL
     Indication: PULMONARY ARTERIAL HYPERTENSION
     Dosage: 16 MG, DAILY
     Route: 065
     Dates: start: 20170606
  4. UPTRAVI [Suspect]
     Active Substance: SELEXIPAG
     Dosage: 0.128 MG, BID
     Route: 048
     Dates: start: 20180309, end: 20180419
  5. OPSUMIT [Concomitant]
     Active Substance: MACITENTAN
     Indication: PULMONARY ARTERIAL HYPERTENSION
     Dosage: UNK
     Dates: start: 20170208
  6. FUROSEMIDE. [Concomitant]
     Active Substance: FUROSEMIDE
     Dosage: 20 MG, DAILY
     Route: 065
     Dates: start: 20180630
  7. ALDACTONE A [Concomitant]
     Active Substance: SPIRONOLACTONE
     Indication: PRODUCT USED FOR UNKNOWN INDICATION
     Dosage: 30 MG, DAILY
     Route: 065
     Dates: start: 20180114, end: 20180526
  8. FUROSEMIDE. [Concomitant]
     Active Substance: FUROSEMIDE
     Indication: PRODUCT USED FOR UNKNOWN INDICATION
     Dosage: 30 MG, DAILY
     Route: 065
     Dates: start: 20180114, end: 20180526
  9. FUROSEMIDE. [Concomitant]
     Active Substance: FUROSEMIDE
     Dosage: UNK UNK, UNKNOWN
     Route: 065
     Dates: start: 20180529, end: 20180629
  10. DIGOSIN [Concomitant]
     Active Substance: DIGOXIN
     Indication: PRODUCT USED FOR UNKNOWN INDICATION
     Dosage: 0.11 MG, DAILY
     Dates: start: 20170606
  11. WARFARIN K [Concomitant]
     Active Substance: WARFARIN POTASSIUM
     Indication: PRODUCT USED FOR UNKNOWN INDICATION
     Dosage: 1.2 MG, DAILY
     Dates: start: 20180118
  12. SAMSCA [Concomitant]
     Active Substance: TOLVAPTAN
     Indication: PRODUCT USED FOR UNKNOWN INDICATION
     Dosage: 4.8 MG, DAILY
     Route: 065
     Dates: start: 20180114
  13. UPTRAVI [Suspect]
     Active Substance: SELEXIPAG
     Dosage: 0.192 MG, BID
     Route: 048
     Dates: start: 20180420, end: 20180517
  14. UPTRAVI [Suspect]
     Active Substance: SELEXIPAG
     Dosage: 0.256 MG, BID
     Route: 048
     Dates: start: 20180518, end: 20180614
  15. UPTRAVI [Suspect]
     Active Substance: SELEXIPAG
     Dosage: 0.32 MG, BID
     Route: 048
     Dates: start: 20180615
  16. ARTIST [Concomitant]
     Active Substance: CARVEDILOL
     Indication: PRODUCT USED FOR UNKNOWN INDICATION
     Dosage: 11 MG, DAILY
     Dates: start: 20170817
  17. ENALART [Concomitant]
     Active Substance: ENALAPRIL MALEATE
     Dosage: UNK UNK, UNKNOWN
     Route: 065
     Dates: start: 20180710
  18. UPTRAVI [Suspect]
     Active Substance: SELEXIPAG
     Indication: PULMONARY ARTERIAL HYPERTENSION
     Dosage: 0.064 MG, BID
     Route: 048
     Dates: start: 20180213, end: 20180308
  19. ENALART [Concomitant]
     Active Substance: ENALAPRIL MALEATE
     Dosage: 3.2 MG, DAILY
     Route: 065
     Dates: start: 20180528, end: 20180701
  20. ALDACTONE A [Concomitant]
     Active Substance: SPIRONOLACTONE
     Dosage: UNK UNK, DAILY
     Route: 065
     Dates: start: 20180529, end: 20180629

REACTIONS (4)
  - Dehydration [Recovered/Resolved]
  - Off label use [Not Recovered/Not Resolved]
  - Dehydration [Recovered/Resolved]
  - Hypotension [Recovered/Resolved]

NARRATIVE: CASE EVENT DATE: 20170606
